FAERS Safety Report 9060924 (Version 1)
Quarter: 2013Q1

REPORT INFORMATION
  Report Type: Spontaneous
  Country: CO (occurrence: CO)
  Receive Date: 20130212
  Receipt Date: 20130212
  Transmission Date: 20140127
  Serious: Yes (Death, Hospitalization, Other)
  Sender: FDA-Public Use
  Company Number: CO-AMGEN-COLSP2013009464

PATIENT
  Age: 83 Year
  Sex: Female

DRUGS (3)
  1. ENBREL [Suspect]
     Indication: RHEUMATOID ARTHRITIS
     Dosage: 50 MG, WEEKLY
     Route: 058
     Dates: start: 2010, end: 2011
  2. PREDNISOLON                        /00016201/ [Concomitant]
     Indication: RHEUMATOID ARTHRITIS
     Dosage: 5 MG, 4X/DAY
     Route: 048
  3. METHOTREXATE [Concomitant]
     Indication: RHEUMATOID ARTHRITIS
     Dosage: 50 MG, 4 TIMES/WK
     Route: 048

REACTIONS (10)
  - Death [Fatal]
  - Respiratory arrest [Fatal]
  - Diabetic foot [Unknown]
  - Acne [Unknown]
  - Skin ulcer [Unknown]
  - Parathyroid disorder [Unknown]
  - Blood potassium decreased [Unknown]
  - Cough [Unknown]
  - Wound infection [Unknown]
  - Infective thrombosis [Unknown]
